FAERS Safety Report 22052724 (Version 4)
Quarter: 2025Q4

REPORT INFORMATION
  Report Type: Spontaneous
  Country: CA (occurrence: CA)
  Receive Date: 20230302
  Receipt Date: 20251224
  Transmission Date: 20260118
  Serious: Yes (Death, Hospitalization)
  Sender: ROCHE
  Company Number: CA-ROCHE-3295456

PATIENT
  Age: 57 Year
  Sex: Male
  Weight: 44 kg

DRUGS (4)
  1. RITUXIMAB [Suspect]
     Active Substance: RITUXIMAB
     Indication: Rheumatoid arthritis
     Route: 042
  2. ACETAMINOPHEN [Concomitant]
     Active Substance: ACETAMINOPHEN
     Indication: Product used for unknown indication
     Route: 048
  3. DIPHENHYDRAMINE HYDROCHLORIDE [Concomitant]
     Active Substance: DIPHENHYDRAMINE HYDROCHLORIDE
     Indication: Product used for unknown indication
     Route: 048
  4. METHYLPREDNISOLONE [Concomitant]
     Active Substance: METHYLPREDNISOLONE
     Indication: Product used for unknown indication
     Route: 042

REACTIONS (14)
  - Abnormal behaviour [Fatal]
  - Irritability [Fatal]
  - Neurogenic shock [Fatal]
  - Tension [Fatal]
  - Dyspnoea [Fatal]
  - Bronchitis [Fatal]
  - Cachexia [Fatal]
  - Peripheral venous disease [Fatal]
  - Product dose omission issue [Fatal]
  - Influenza like illness [Fatal]
  - Death [Fatal]
  - Substance abuse [Fatal]
  - Lung disorder [Fatal]
  - Infection [Fatal]
